FAERS Safety Report 5693570-7 (Version None)
Quarter: 2008Q2

REPORT INFORMATION
  Report Type: 
  Country: None (occurrence: None)
  Receive Date: 20080402
  Receipt Date: 20080402
  Transmission Date: 20081010
  Serious: Yes (Other)
  Sender: FDA-Public Use
  Company Number: None

PATIENT
  Sex: Male
  Weight: 24.9478 kg

DRUGS (1)
  1. SINGULAIR [Suspect]
     Indication: ASTHMA
     Dosage: 1 TABLET 1 X PER DAY PO
     Route: 048
     Dates: start: 20051101, end: 20080401

REACTIONS (6)
  - ABNORMAL BEHAVIOUR [None]
  - CRYING [None]
  - DEVELOPMENTAL DELAY [None]
  - PERSONALITY CHANGE [None]
  - STRESS [None]
  - SUICIDAL IDEATION [None]
